FAERS Safety Report 8826236 (Version 2)
Quarter: 2012Q4

REPORT INFORMATION
  Report Type: 
  Country: US (occurrence: US)
  Receive Date: 20121005
  Receipt Date: 20121022
  Transmission Date: 20130627
  Serious: Yes (Death, Other)
  Sender: FDA-Public Use
  Company Number: US-ROCHE-1141523

PATIENT
  Sex: Male
  Weight: 83.08 kg

DRUGS (6)
  1. AVASTIN [Suspect]
     Indication: COLON CANCER
     Route: 042
     Dates: start: 20111101, end: 20120203
  2. ALOXI [Concomitant]
     Dosage: ANTI EMETIC
     Route: 042
     Dates: start: 20111101, end: 20120203
  3. DECADRON [Concomitant]
     Indication: PREMEDICATION
     Route: 042
     Dates: start: 20111101, end: 20120203
  4. OXALIPLATIN [Concomitant]
     Indication: COLON CANCER
     Route: 042
     Dates: start: 20111101, end: 20120203
  5. LEUCOVORIN [Concomitant]
     Indication: COLON CANCER
     Dosage: D1, D2 OF 2 WEEKS
     Route: 042
     Dates: start: 20111101, end: 20120203
  6. 5-FU [Concomitant]
     Indication: COLON CANCER
     Dosage: D1, D2 OF 2 WEEKS
     Route: 042
     Dates: start: 20111101, end: 20120203

REACTIONS (2)
  - Death [Fatal]
  - Cerebrovascular accident [Recovering/Resolving]
